FAERS Safety Report 22182060 (Version 1)
Quarter: 2023Q2

REPORT INFORMATION
  Report Type: Spontaneous
  Country: US (occurrence: US)
  Receive Date: 20230406
  Receipt Date: 20230406
  Transmission Date: 20230722
  Serious: No
  Sender: FDA-Public Use
  Company Number: US-SANOFI-01562266

PATIENT
  Sex: Female

DRUGS (1)
  1. SELSUN BLUE MEDICATED [Suspect]
     Active Substance: SELENIUM SULFIDE
     Dosage: QOD
     Route: 065

REACTIONS (1)
  - Hair colour changes [Unknown]
